FAERS Safety Report 24884577 (Version 3)
Quarter: 2025Q1

REPORT INFORMATION
  Report Type: Spontaneous
  Country: US (occurrence: US)
  Receive Date: 20250124
  Receipt Date: 20250312
  Transmission Date: 20250409
  Serious: No
  Sender: SANOFI AVENTIS
  Company Number: US-SA-2025SA022203

PATIENT
  Age: 5 Year
  Sex: Female

DRUGS (1)
  1. DUPIXENT [Suspect]
     Active Substance: DUPILUMAB
     Indication: Dermatitis atopic
     Dosage: 300 MG, Q4W
     Route: 058
     Dates: start: 202412

REACTIONS (8)
  - Mental disorder [Unknown]
  - General physical health deterioration [Unknown]
  - Dermatitis atopic [Unknown]
  - Ocular hyperaemia [Unknown]
  - Eye irritation [Unknown]
  - Rash [Unknown]
  - Erythema [Unknown]
  - Extra dose administered [Unknown]
